FAERS Safety Report 8570787 (Version 4)
Quarter: 2014Q1

REPORT INFORMATION
  Report Type: Spontaneous
  Country: US (occurrence: US)
  Receive Date: 20120521
  Receipt Date: 20140207
  Transmission Date: 20141002
  Serious: Yes (Death, Hospitalization)
  Sender: FDA-Public Use
  Company Number: US-B.I. PHARMACEUTICALS,INC./RIDGEFIELD-2012-BP-11051BP

PATIENT
  Sex: Male
  Weight: 88.45 kg

DRUGS (5)
  1. PRADAXA [Suspect]
     Indication: ATRIAL FIBRILLATION
     Dates: start: 20110324, end: 20110623
  2. PRADAXA [Suspect]
     Indication: ANTICOAGULANT THERAPY
  3. LISINOPRIL [Concomitant]
  4. FLOMAX [Concomitant]
  5. ALPRAZOLAM [Concomitant]

REACTIONS (1)
  - Hepatic haemorrhage [Fatal]
